FAERS Safety Report 7252138-1 (Version None)
Quarter: 2011Q1

REPORT INFORMATION
  Report Type: 
  Country: None (occurrence: None)
  Receive Date: 20110128
  Receipt Date: 20100430
  Transmission Date: 20110831
  Serious: No
  Sender: FDA-Public Use
  Company Number: US-ABBOTT-10P-163-0642292-00

PATIENT
  Sex: Female
  Weight: 108.96 kg

DRUGS (6)
  1. PROZAC [Concomitant]
     Indication: DEPRESSION
  2. HUMIRA [Suspect]
     Indication: RHEUMATOID ARTHRITIS
     Route: 058
     Dates: start: 20100218
  3. SYNTHROID [Concomitant]
     Indication: HYPOTHYROIDISM
     Route: 048
  4. FOLIC ACID [Concomitant]
     Indication: VITAMIN SUPPLEMENTATION
  5. DARVON [Concomitant]
     Indication: PAIN
  6. METHOTREXATE [Concomitant]
     Indication: RHEUMATOID ARTHRITIS
     Route: 048

REACTIONS (4)
  - ARTHRALGIA [None]
  - DRUG EFFECT DECREASED [None]
  - PARAESTHESIA [None]
  - MUSCULOSKELETAL STIFFNESS [None]
